APPROVED DRUG PRODUCT: NIACIN
Active Ingredient: NIACIN
Strength: 500MG
Dosage Form/Route: TABLET, EXTENDED RELEASE;ORAL
Application: A076378 | Product #001 | TE Code: AB
Applicant: BARR LABORATORIES INC
Approved: Apr 26, 2005 | RLD: No | RS: No | Type: RX